FAERS Safety Report 6416517-4 (Version None)
Quarter: 2009Q4

REPORT INFORMATION
  Report Type: 
  Country: None (occurrence: None)
  Receive Date: 20091027
  Receipt Date: 20091015
  Transmission Date: 20100525
  Serious: Yes (Other)
  Sender: FDA-Public Use
  Company Number: PHHY2009DE00624

PATIENT

DRUGS (1)
  1. ZOMETA [Suspect]
     Route: 042

REACTIONS (2)
  - BONE DISORDER [None]
  - OSTEONECROSIS [None]
